FAERS Safety Report 6615750-6 (Version None)
Quarter: 2010Q1

REPORT INFORMATION
  Report Type: 
  Country: None (occurrence: None)
  Receive Date: 20100305
  Receipt Date: 20100223
  Transmission Date: 20100710
  Serious: Yes (Hospitalization, Other)
  Sender: FDA-Public Use
  Company Number: US-AMGEN-QUU394860

PATIENT
  Sex: Male

DRUGS (3)
  1. ENBREL [Suspect]
     Indication: RHEUMATOID ARTHRITIS
     Route: 058
     Dates: start: 20000101
  2. ARAVA [Concomitant]
  3. PLAQUENIL [Concomitant]

REACTIONS (8)
  - CARDIAC PACEMAKER INSERTION [None]
  - CORONARY ARTERIAL STENT INSERTION [None]
  - DEVICE RELATED INFECTION [None]
  - EYE INFECTION [None]
  - PAIN [None]
  - RENAL FAILURE [None]
  - STAPHYLOCOCCAL INFECTION [None]
  - TYPE 2 DIABETES MELLITUS [None]
